FAERS Safety Report 20327187 (Version 2)
Quarter: 2022Q1

REPORT INFORMATION
  Report Type: Spontaneous
  Country: US (occurrence: US)
  Receive Date: 20220112
  Receipt Date: 20220312
  Transmission Date: 20220424
  Serious: No
  Sender: FDA-Public Use
  Company Number: US-CELGENE-USA-20220102658

PATIENT
  Sex: Male
  Weight: 103.06 kg

DRUGS (9)
  1. REVLIMID [Suspect]
     Active Substance: LENALIDOMIDE
     Indication: B-cell lymphoma
     Dosage: 20 MILLIGRAM
     Route: 048
     Dates: start: 20211224
  2. REVLIMID [Suspect]
     Active Substance: LENALIDOMIDE
     Indication: Marginal zone lymphoma
  3. RAMIPRIL [Concomitant]
     Active Substance: RAMIPRIL
     Indication: Hypertension
     Dosage: 5 MILLIGRAM
     Route: 048
  4. TAMSULOSIN [Concomitant]
     Active Substance: TAMSULOSIN
     Indication: Product used for unknown indication
     Dosage: 0.4 MILLIGRAM
     Route: 048
  5. PRAVASTATIN [Concomitant]
     Active Substance: PRAVASTATIN
     Indication: Product used for unknown indication
     Route: 065
  6. PREDNISONE [Concomitant]
     Active Substance: PREDNISONE
     Indication: Product used for unknown indication
     Route: 065
  7. ROSUVASTATIN [Concomitant]
     Active Substance: ROSUVASTATIN
     Indication: Blood cholesterol increased
     Dosage: 10 MILLIGRAM
     Route: 048
  8. VITAMIN D3 [Concomitant]
     Active Substance: CHOLECALCIFEROL
     Indication: Product used for unknown indication
     Dosage: 50 MICROGRAM
     Route: 048
  9. Calcium/magnesium/zinc [Concomitant]
     Indication: Product used for unknown indication
     Route: 065

REACTIONS (12)
  - White blood cell count decreased [Unknown]
  - Red blood cell count decreased [Unknown]
  - Platelet count decreased [Unknown]
  - Muscle spasms [Unknown]
  - Dizziness [Not Recovered/Not Resolved]
  - Vertigo [Unknown]
  - Rash [Unknown]
  - Pruritus [Unknown]
  - Fatigue [Not Recovered/Not Resolved]
  - Hypotension [Not Recovered/Not Resolved]
  - Dyspnoea [Not Recovered/Not Resolved]
  - Arthralgia [Not Recovered/Not Resolved]
